FAERS Safety Report 10206879 (Version 1)
Quarter: 2014Q2

REPORT INFORMATION
  Report Type: Spontaneous
  Country: US (occurrence: None)
  Receive Date: 20140528
  Receipt Date: 20140528
  Transmission Date: 20141212
  Serious: No
  Sender: FDA-Public Use
  Company Number: None

PATIENT
  Age: 78 Year
  Sex: Female
  Weight: 55.34 kg

DRUGS (1)
  1. LEVAQUIN [Suspect]
     Indication: BRONCHITIS
     Dosage: 500 MG ONCE DAILY TAKEN BY MOUTH
     Route: 048
     Dates: start: 20140519, end: 20140520

REACTIONS (5)
  - Tremor [None]
  - Nervousness [None]
  - Dizziness [None]
  - Fatigue [None]
  - Abdominal pain upper [None]
